FAERS Safety Report 13263404 (Version 4)
Quarter: 2017Q2

REPORT INFORMATION
  Report Type: Spontaneous
  Country: JP (occurrence: JP)
  Receive Date: 20170223
  Receipt Date: 20170516
  Transmission Date: 20170830
  Serious: Yes (Life-Threatening, Hospitalization, Other)
  Sender: FDA-Public Use
  Company Number: JP-BRISTOL-MYERS SQUIBB COMPANY-BMS-2017-014503

PATIENT
  Age: 60 Year
  Sex: Male

DRUGS (2)
  1. OPDIVO [Suspect]
     Active Substance: NIVOLUMAB
     Indication: NON-SMALL CELL LUNG CANCER
     Dosage: 3 MG/KG, Q2WK
     Route: 041
     Dates: start: 20170105, end: 20170202
  2. LIXIANA [Concomitant]
     Active Substance: EDOXABAN TOSYLATE
     Indication: PRODUCT USED FOR UNKNOWN INDICATION
     Dosage: UNK
     Route: 065
     Dates: start: 20161212, end: 20170211

REACTIONS (11)
  - Cardiomegaly [Unknown]
  - Hypothyroidism [Recovering/Resolving]
  - Metastases to bone [Unknown]
  - Intestinal ischaemia [Unknown]
  - Pneumonia bacterial [Recovering/Resolving]
  - Drain placement [Unknown]
  - Gastrointestinal necrosis [Unknown]
  - Infarction [Unknown]
  - Arterial fibrosis [Unknown]
  - Small intestinal perforation [Recovering/Resolving]
  - Peritonitis [Unknown]

NARRATIVE: CASE EVENT DATE: 201702
